FAERS Safety Report 7206705-1 (Version None)
Quarter: 2011Q1

REPORT INFORMATION
  Report Type: 
  Country: None (occurrence: None)
  Receive Date: 20110103
  Receipt Date: 20101221
  Transmission Date: 20110831
  Serious: Yes (Other)
  Sender: FDA-Public Use
  Company Number: IE-MEDIMMUNE-MEDI-0012073

PATIENT
  Sex: Female
  Weight: 4.6 kg

DRUGS (3)
  1. KAPSOVIT [Concomitant]
  2. RANITIDINE HYDROCHLORIDE [Concomitant]
  3. SYNAGIS [Suspect]
     Route: 030
     Dates: start: 20101005, end: 20101005

REACTIONS (1)
  - MENINGITIS BACTERIAL [None]
